FAERS Safety Report 4967212-X (Version None)
Quarter: 2006Q2

REPORT INFORMATION
  Report Type: 
  Country: None (occurrence: None)
  Receive Date: 20060403
  Receipt Date: 20060320
  Transmission Date: 20061013
  Serious: Yes (Death)
  Sender: FDA-Public Use
  Company Number: 2005104037

PATIENT
  Age: 91 Year
  Sex: Female
  Weight: 49.8957 kg

DRUGS (8)
  1. DETROL [Suspect]
     Indication: HYPERTONIC BLADDER
     Dosage: 2 MG (1 MG, 2 IN 1 D)
     Dates: start: 20050707, end: 20050713
  2. GLYBURIDE [Concomitant]
  3. ACTOS [Concomitant]
  4. ARICEPT [Concomitant]
  5. NEXIUM [Concomitant]
  6. MEGACE [Concomitant]
  7. PRAVACHOL [Concomitant]
  8. COZAAR [Concomitant]

REACTIONS (2)
  - NAUSEA [None]
  - RETCHING [None]
